FAERS Safety Report 12331317 (Version 1)
Quarter: 2016Q2

REPORT INFORMATION
  Report Type: Spontaneous
  Country: JP (occurrence: JP)
  Receive Date: 20160504
  Receipt Date: 20160504
  Transmission Date: 20160815
  Serious: Yes (Other)
  Sender: FDA-Public Use
  Company Number: JP-PSKUSFDA-2016-JP-0107

PATIENT
  Sex: Female

DRUGS (1)
  1. FARESTON [Suspect]
     Active Substance: TOREMIFENE CITRATE
     Indication: BREAST CANCER
     Dosage: UNKNOWN
     Dates: start: 201509

REACTIONS (1)
  - Hepatic function abnormal [None]

NARRATIVE: CASE EVENT DATE: 201512
